FAERS Safety Report 8245335-X (Version None)
Quarter: 2012Q1

REPORT INFORMATION
  Report Type: 
  Country: None (occurrence: None)
  Receive Date: 20120329
  Receipt Date: 20120320
  Transmission Date: 20120608
  Serious: Yes (Other)
  Sender: FDA-Public Use
  Company Number: US-AMGEN-USASP2012017786

PATIENT
  Sex: Male

DRUGS (1)
  1. EPOGEN [Suspect]
     Indication: DIALYSIS
     Dosage: 5500 IU, 3 TIMES/WK
     Dates: start: 20111201

REACTIONS (2)
  - DRUG INEFFECTIVE [None]
  - BLOOD PRODUCT TRANSFUSION DEPENDENT [None]
